FAERS Safety Report 16280787 (Version 1)
Quarter: 2019Q2

REPORT INFORMATION
  Report Type: Spontaneous
  Country: US (occurrence: US)
  Receive Date: 20190507
  Receipt Date: 20190507
  Transmission Date: 20190711
  Serious: No
  Sender: FDA-Public Use
  Company Number: US-JNJFOC-20190438366

PATIENT
  Sex: Male

DRUGS (11)
  1. SYMPROIC [Concomitant]
     Active Substance: NALDEMEDINE
  2. GABAPENTIN. [Concomitant]
     Active Substance: GABAPENTIN
  3. DUTASTERIDE. [Concomitant]
     Active Substance: DUTASTERIDE
  4. FENTANYL. [Concomitant]
     Active Substance: FENTANYL
     Route: 065
  5. SILODOSIN. [Concomitant]
     Active Substance: SILODOSIN
  6. IMBRUVICA [Suspect]
     Active Substance: IBRUTINIB
     Indication: PRODUCT USED FOR UNKNOWN INDICATION
     Route: 065
  7. ALLOPURINOL. [Concomitant]
     Active Substance: ALLOPURINOL
  8. LIPITOR [Concomitant]
     Active Substance: ATORVASTATIN CALCIUM
  9. ACYCLOVIR. [Concomitant]
     Active Substance: ACYCLOVIR
  10. CARVEDILOL. [Concomitant]
     Active Substance: CARVEDILOL
  11. ALPRAZOLAM. [Concomitant]
     Active Substance: ALPRAZOLAM

REACTIONS (1)
  - Bone pain [Unknown]
